FAERS Safety Report 13975603 (Version 1)
Quarter: 2017Q3

REPORT INFORMATION
  Report Type: Spontaneous
  Country: US (occurrence: US)
  Receive Date: 20170915
  Receipt Date: 20170915
  Transmission Date: 20171128
  Serious: No
  Sender: FDA-Public Use
  Company Number: US-PFIZER INC-2017397734

PATIENT
  Sex: Female

DRUGS (1)
  1. EUCRISA [Suspect]
     Active Substance: CRISABOROLE
     Indication: ECZEMA
     Dosage: 2X/DAY

REACTIONS (5)
  - Eyelid irritation [Unknown]
  - Burning sensation [Unknown]
  - Eyelid pain [Unknown]
  - Pain in extremity [Unknown]
  - Erythema [Unknown]
